FAERS Safety Report 21081388 (Version 1)
Quarter: 2022Q3

REPORT INFORMATION
  Report Type: Spontaneous
  Country: US (occurrence: US)
  Receive Date: 20220714
  Receipt Date: 20220714
  Transmission Date: 20221027
  Serious: No
  Sender: FDA-Public Use
  Company Number: US-VIIV HEALTHCARE LIMITED-US2022AMR105451

PATIENT
  Sex: Female

DRUGS (3)
  1. CABENUVA [Interacting]
     Active Substance: CABOTEGRAVIR\RILPIVIRINE
     Indication: Product used for unknown indication
     Dosage: UNK
  2. CABENUVA [Interacting]
     Active Substance: CABOTEGRAVIR\RILPIVIRINE
  3. CABENUVA [Interacting]
     Active Substance: CABOTEGRAVIR\RILPIVIRINE

REACTIONS (1)
  - Drug interaction [Unknown]
